FAERS Safety Report 7683993-9 (Version None)
Quarter: 2011Q3

REPORT INFORMATION
  Report Type: 
  Country: None (occurrence: None)
  Receive Date: 20110815
  Receipt Date: 20110805
  Transmission Date: 20111222
  Serious: Yes (Death, Other)
  Sender: FDA-Public Use
  Company Number: US-AMGEN-US385923

PATIENT
  Age: 65 Year
  Sex: Male

DRUGS (2)
  1. NPLATE [Suspect]
     Dates: start: 20090210
  2. NPLATE [Suspect]
     Indication: IDIOPATHIC THROMBOCYTOPENIC PURPURA
     Dosage: 96 A?G, UNK
     Route: 058
     Dates: start: 20090216, end: 20090309

REACTIONS (2)
  - THROMBOCYTOPENIA [None]
  - DISEASE PROGRESSION [None]
